FAERS Safety Report 24010913 (Version 1)
Quarter: 2024Q2

REPORT INFORMATION
  Report Type: Spontaneous
  Country: CN (occurrence: CN)
  Receive Date: 20240625
  Receipt Date: 20240625
  Transmission Date: 20240715
  Serious: Yes (Other)
  Sender: FDA-Public Use
  Company Number: CN-PFIZER INC-PV202400082995

PATIENT
  Age: 56 Year
  Sex: Female

DRUGS (2)
  1. DIFLUCAN [Suspect]
     Active Substance: FLUCONAZOLE
     Indication: Oesophageal neoplasm
     Dosage: 100 MG, 1X/DAY VIA NASAL FEEDING
     Dates: start: 20240531, end: 20240603
  2. MEROPENEM [Suspect]
     Active Substance: MEROPENEM
     Indication: Oesophageal neoplasm
     Dosage: 1 G, 3X/DAY
     Route: 041
     Dates: start: 20240525, end: 20240603

REACTIONS (2)
  - Myelosuppression [Unknown]
  - Off label use [Unknown]

NARRATIVE: CASE EVENT DATE: 20240531
